FAERS Safety Report 10750887 (Version 1)
Quarter: 2015Q1

REPORT INFORMATION
  Report Type: Spontaneous
  Country: GB (occurrence: GB)
  Receive Date: 20150130
  Receipt Date: 20150130
  Transmission Date: 20150721
  Serious: Yes (Hospitalization)
  Sender: FDA-Public Use
  Company Number: GB-DRREDDYS-GER/UKI/15/0045639

PATIENT
  Age: 53 Year
  Sex: Female
  Weight: 52.16 kg

DRUGS (2)
  1. ATORVASTATIN [Suspect]
     Active Substance: ATORVASTATIN
     Indication: CARDIAC DISORDER
     Route: 048
     Dates: start: 20140219, end: 20140317
  2. ROSUVASTATIN [Suspect]
     Active Substance: ROSUVASTATIN
     Indication: CARDIAC DISORDER
     Route: 048
     Dates: start: 20140317, end: 20141218

REACTIONS (2)
  - Pancreatitis acute [Recovering/Resolving]
  - Abdominal pain upper [Recovering/Resolving]

NARRATIVE: CASE EVENT DATE: 20140219
